FAERS Safety Report 5431642-2 (Version None)
Quarter: 2007Q3

REPORT INFORMATION
  Report Type: 
  Country: None (occurrence: None)
  Receive Date: 20070828
  Receipt Date: 20070813
  Transmission Date: 20080115
  Serious: Yes (Life-Threatening, Hospitalization, Other)
  Sender: FDA-Public Use
  Company Number: A-US2007-15594

PATIENT
  Age: 84 Year
  Sex: Male

DRUGS (2)
  1. TRACLEER [Suspect]
     Indication: PULMONARY HYPERTENSION
     Dosage: 62.5 MG, BID, ORAL
     Route: 048
     Dates: start: 20070323, end: 20070328
  2. TRACLEER [Suspect]
     Indication: PULMONARY HYPERTENSION
     Dosage: 62.5 MG, BID, ORAL
     Route: 048
     Dates: start: 20070508, end: 20070511

REACTIONS (9)
  - CARDIAC FIBRILLATION [None]
  - COMA [None]
  - FLUID RETENTION [None]
  - MENTAL STATUS CHANGES [None]
  - NERVOUSNESS [None]
  - OEDEMA [None]
  - PNEUMONIA [None]
  - SHOCK HYPOGLYCAEMIC [None]
  - SWELLING FACE [None]
